FAERS Safety Report 19688214 (Version 2)
Quarter: 2021Q3

REPORT INFORMATION
  Report Type: Spontaneous
  Country: JP (occurrence: JP)
  Receive Date: 20210812
  Receipt Date: 20210827
  Transmission Date: 20211014
  Serious: Yes (Hospitalization, Other)
  Sender: FDA-Public Use
  Company Number: JP-009507513-2108JPN000435J

PATIENT
  Age: 73 Year
  Sex: Male

DRUGS (5)
  1. PACLITAXEL. [Suspect]
     Active Substance: PACLITAXEL
     Dosage: 200 MILLIGRAM/SQ. METER, Q3W
     Route: 041
     Dates: start: 20210810
  2. CARBOPLATIN. [Suspect]
     Active Substance: CARBOPLATIN
     Dosage: UNK, Q3W
     Route: 041
     Dates: start: 20210810
  3. PACLITAXEL. [Suspect]
     Active Substance: PACLITAXEL
     Dosage: 200 MILLIGRAM/SQ. METER, Q3W
     Route: 041
     Dates: start: 20210712, end: 20210712
  4. KEYTRUDA [Suspect]
     Active Substance: PEMBROLIZUMAB
     Indication: LUNG SQUAMOUS CELL CARCINOMA STAGE IV
     Dosage: 200 MILLIGRAM, Q3W
     Route: 041
     Dates: start: 20210712, end: 20210712
  5. CARBOPLATIN. [Suspect]
     Active Substance: CARBOPLATIN
     Indication: LUNG SQUAMOUS CELL CARCINOMA STAGE IV
     Dosage: UNK, Q3W
     Route: 041
     Dates: start: 20210712, end: 20210712

REACTIONS (7)
  - Acute respiratory distress syndrome [Unknown]
  - Febrile neutropenia [Recovered/Resolved]
  - Pleural effusion [Unknown]
  - Myelosuppression [Recovered/Resolved]
  - Lung opacity [Unknown]
  - Platelet count decreased [Recovered/Resolved]
  - Lung disorder [Not Recovered/Not Resolved]

NARRATIVE: CASE EVENT DATE: 2021
